FAERS Safety Report 10040829 (Version 1)
Quarter: 2014Q1

REPORT INFORMATION
  Report Type: Spontaneous
  Country: US (occurrence: US)
  Receive Date: 20140327
  Receipt Date: 20140327
  Transmission Date: 20141002
  Serious: No
  Sender: FDA-Public Use
  Company Number: US-009507513-1403USA004420

PATIENT
  Age: 80 Year
  Sex: Male

DRUGS (3)
  1. NASONEX [Suspect]
     Indication: HYPERSENSITIVITY
     Dosage: 50 MICROGRAM, QD
     Route: 045
     Dates: start: 2001, end: 20140214
  2. LEVOTHYROXINE SODIUM [Concomitant]
     Route: 048
  3. LISINOPRIL [Concomitant]

REACTIONS (1)
  - Eye infection [Not Recovered/Not Resolved]
